FAERS Safety Report 15568971 (Version 1)
Quarter: 2018Q4

REPORT INFORMATION
  Report Type: Report from Study
  Country: None (occurrence: BR)
  Receive Date: 20181031
  Receipt Date: 20181031
  Transmission Date: 20190205
  Serious: Yes (Hospitalization)
  Sender: FDA-Public Use
  Company Number: BR-ABBVIE-16K-020-1760791-00

PATIENT
  Age: 29 Year
  Sex: Female
  Weight: 50 kg

DRUGS (4)
  1. HUMIRA [Suspect]
     Active Substance: ADALIMUMAB
     Indication: CROHN^S DISEASE
     Dosage: WEEK 0, LOADING DOSE
     Route: 058
     Dates: start: 20160913, end: 20160913
  2. HUMIRA [Suspect]
     Active Substance: ADALIMUMAB
     Route: 058
     Dates: start: 2016
  3. MESALAZINE [Concomitant]
     Active Substance: MESALAMINE
     Indication: CROHN^S DISEASE
     Route: 048
     Dates: start: 2013
  4. HUMIRA [Suspect]
     Active Substance: ADALIMUMAB
     Dosage: WEEK 1, LOADING DOSE
     Route: 058
     Dates: start: 201609, end: 201609

REACTIONS (6)
  - Fistula discharge [Unknown]
  - Abdominal pain [Recovering/Resolving]
  - Gastrointestinal fistula [Unknown]
  - Gastrointestinal inflammation [Unknown]
  - Crohn^s disease [Unknown]
  - Purulent discharge [Unknown]

NARRATIVE: CASE EVENT DATE: 2016
